FAERS Safety Report 6036280-9 (Version None)
Quarter: 2009Q1

REPORT INFORMATION
  Report Type: 
  Country: None (occurrence: None)
  Receive Date: 20090113
  Receipt Date: 20090109
  Transmission Date: 20090719
  Serious: Yes (Death, Other)
  Sender: FDA-Public Use
  Company Number: PHBS2009HK00472

PATIENT
  Age: 38 Year
  Sex: Male

DRUGS (4)
  1. CLOZAPINE [Suspect]
     Indication: SCHIZOPHRENIA
     Dosage: 900 MG
  2. VALPROATE SODIUM [Concomitant]
     Dosage: 1400 MG
  3. ZIPRASIDONE HCL [Concomitant]
     Dosage: 160 MG
  4. DIAZEPAM [Concomitant]
     Dosage: 20 MG

REACTIONS (6)
  - ASPIRATION [None]
  - FAECALOMA [None]
  - INTESTINAL OBSTRUCTION [None]
  - LOSS OF CONSCIOUSNESS [None]
  - PULMONARY OEDEMA [None]
  - VOMITING [None]
